FAERS Safety Report 19577443 (Version 2)
Quarter: 2021Q4

REPORT INFORMATION
  Report Type: Spontaneous
  Country: CA (occurrence: CA)
  Receive Date: 20210719
  Receipt Date: 20211102
  Transmission Date: 20220303
  Serious: Yes (Other)
  Sender: FDA-Public Use
  Company Number: CA-TAKEDA-2021TUS043714

PATIENT
  Age: 7 Year
  Sex: Male
  Weight: 24 kg

DRUGS (4)
  1. HUMAN IMMUNOGLOBULIN G [Suspect]
     Active Substance: HUMAN IMMUNOGLOBULIN G
     Indication: Kawasaki^s disease
     Dosage: 50 GRAM, QD
     Route: 042
  2. HUMAN IMMUNOGLOBULIN G [Suspect]
     Active Substance: HUMAN IMMUNOGLOBULIN G
     Dosage: 50 GRAM, QD
     Route: 042
     Dates: start: 20210226, end: 20210226
  3. GAMUNEX-C [Suspect]
     Active Substance: HUMAN IMMUNOGLOBULIN G
     Indication: Kawasaki^s disease
     Dosage: 24 MILLIGRAM, QD
     Route: 042
  4. GAMUNEX-C [Suspect]
     Active Substance: HUMAN IMMUNOGLOBULIN G
     Dosage: 30 GRAM, QD
     Route: 042
     Dates: start: 20210223, end: 20210223

REACTIONS (7)
  - Coombs positive haemolytic anaemia [Unknown]
  - Dizziness [Unknown]
  - Fatigue [Unknown]
  - Haemoglobin decreased [Unknown]
  - Haemolysis [Unknown]
  - Haemolytic anaemia [Unknown]
  - Low density lipoprotein increased [Unknown]

NARRATIVE: CASE EVENT DATE: 20210301
